FAERS Safety Report 9537100 (Version 2)
Quarter: 2014Q1

REPORT INFORMATION
  Report Type: Spontaneous
  Country: US (occurrence: US)
  Receive Date: 20130919
  Receipt Date: 20140303
  Transmission Date: 20141002
  Serious: Yes (Hospitalization)
  Sender: FDA-Public Use
  Company Number: US-ACTELION-A-US2013-88381

PATIENT
  Age: 56 Year
  Sex: Female

DRUGS (22)
  1. TRACLEER [Suspect]
     Indication: PULMONARY ARTERIAL HYPERTENSION
     Dosage: 125 MG, BID
     Route: 048
     Dates: start: 20041101
  2. TRACLEER [Suspect]
     Dosage: 62.5 MG, BID
     Route: 048
     Dates: start: 20041005, end: 20041031
  3. TRACLEER [Suspect]
     Dosage: UNK
     Route: 048
  4. REMODULIN [Suspect]
     Dosage: 7.75 MG, UNK
     Dates: start: 20080625
  5. NORVASC [Concomitant]
  6. LANOXIN [Concomitant]
  7. PROZAC [Concomitant]
  8. FOLIC ACID [Concomitant]
  9. VICODIN [Concomitant]
  10. IMODIUM AD [Concomitant]
  11. LUNESTA [Concomitant]
  12. METHOTREXATE [Concomitant]
  13. MULTIVITAMIN [Concomitant]
  14. NEURONTIN [Concomitant]
  15. K-DUR [Concomitant]
  16. REVATIO [Concomitant]
  17. SPIRONOLACTONE [Concomitant]
  18. DEMADEX [Concomitant]
  19. VITAMIN D [Concomitant]
  20. COUMADIN [Concomitant]
  21. XANAX [Concomitant]
  22. ZYRTEC [Concomitant]

REACTIONS (9)
  - Feeling abnormal [Recovering/Resolving]
  - Drug dose omission [Recovering/Resolving]
  - Back pain [Recovering/Resolving]
  - Chronic respiratory failure [Recovered/Resolved]
  - Chest pain [Recovered/Resolved]
  - Dyspnoea [Recovered/Resolved]
  - Dizziness [Recovered/Resolved]
  - Fall [Unknown]
  - Fluid retention [Unknown]
